FAERS Safety Report 8773144 (Version 1)
Quarter: 2012Q4

REPORT INFORMATION
  Report Type: 
  Country: GB (occurrence: GB)
  Receive Date: 20120907
  Receipt Date: 20120907
  Transmission Date: 20130627
  Serious: Yes (Hospitalization)
  Sender: FDA-Public Use
  Company Number: GB-BRISTOL-MYERS SQUIBB COMPANY-16906240

PATIENT
  Age: 2 Year
  Sex: Male

DRUGS (5)
  1. CISPLATIN [Suspect]
     Indication: NEUROBLASTOMA
  2. CARBOPLATIN [Suspect]
     Indication: NEUROBLASTOMA
  3. ETOPOSIDE [Suspect]
     Indication: NEUROBLASTOMA
  4. VINCRISTINE [Suspect]
     Indication: NEUROBLASTOMA
  5. CYCLOPHOSPHAMIDE [Suspect]
     Indication: NEUROBLASTOMA

REACTIONS (3)
  - Hyponatraemia [Recovering/Resolving]
  - Hyperkalaemia [Recovering/Resolving]
  - Febrile neutropenia [Recovering/Resolving]
